FAERS Safety Report 8391887-9 (Version None)
Quarter: 2012Q2

REPORT INFORMATION
  Report Type: 
  Country: None (occurrence: None)
  Receive Date: 20120529
  Receipt Date: 20120521
  Transmission Date: 20120825
  Serious: Yes (Hospitalization, Other)
  Sender: FDA-Public Use
  Company Number: US-GLAXOSMITHKLINE-A0978933A

PATIENT
  Age: 45 Year
  Sex: Male

DRUGS (5)
  1. CYTARABINE [Suspect]
     Indication: ACUTE MYELOID LEUKAEMIA
     Dosage: 200MGM2 CYCLIC
     Route: 042
     Dates: start: 20111224, end: 20120303
  2. DASATINIB [Suspect]
     Indication: ACUTE MYELOID LEUKAEMIA
     Route: 048
     Dates: start: 20111224
  3. ACYCLOVIR [Suspect]
     Indication: PROPHYLAXIS
     Dates: start: 20120316
  4. FLUCONAZOLE [Suspect]
     Indication: PROPHYLAXIS
     Dates: start: 20120316
  5. PIPERACILLIN [Suspect]
     Indication: PROPHYLAXIS
     Dates: start: 20120316

REACTIONS (1)
  - ELECTROCARDIOGRAM QT PROLONGED [None]
